FAERS Safety Report 6218106-3 (Version None)
Quarter: 2009Q2

REPORT INFORMATION
  Report Type: 
  Country: None (occurrence: None)
  Receive Date: 20090608
  Receipt Date: 20090525
  Transmission Date: 20091009
  Serious: Yes (Other)
  Sender: FDA-Public Use
  Company Number: PHHY2009FR20369

PATIENT
  Age: 54 Year
  Sex: Female

DRUGS (3)
  1. ZOMETA [Suspect]
     Indication: OSTEOPOROSIS
     Dosage: 4 MG, UNK
     Dates: start: 20061016, end: 20061116
  2. ZOMETA [Suspect]
     Dosage: 4 MG, UNK
     Dates: start: 20071130, end: 20071130
  3. FORTEO [Concomitant]
     Dosage: UNK
     Dates: start: 20050601, end: 20060501

REACTIONS (2)
  - ARTICULAR CALCIFICATION [None]
  - BONE PAIN [None]
